FAERS Safety Report 9646062 (Version 5)
Quarter: 2014Q3

REPORT INFORMATION
  Report Type: Report from Study
  Country: CA (occurrence: CA)
  Receive Date: 20131025
  Receipt Date: 20140725
  Transmission Date: 20150326
  Serious: Yes (Other)
  Sender: FDA-Public Use
  Company Number: CA-ROCHE-1293443

PATIENT
  Age: 54 Year
  Sex: Female
  Weight: 87.3 kg

DRUGS (6)
  1. PREDNISONE. [Concomitant]
     Active Substance: PREDNISONE
     Route: 065
  2. ACTEMRA [Suspect]
     Active Substance: TOCILIZUMAB
     Indication: RHEUMATOID ARTHRITIS
     Dosage: START DATE: 03/OCT/2013
     Route: 042
     Dates: start: 20131003
  3. FOLIC ACID. [Concomitant]
     Active Substance: FOLIC ACID
     Route: 065
  4. METHOTREXATE [Concomitant]
     Active Substance: METHOTREXATE
     Route: 065
  5. ACTEMRA [Suspect]
     Active Substance: TOCILIZUMAB
     Route: 042
     Dates: start: 20140527, end: 20140625
  6. ACTEMRA [Suspect]
     Active Substance: TOCILIZUMAB
     Dosage: START DATE: 30/APR/2014
     Route: 042

REACTIONS (10)
  - Aspartate aminotransferase increased [Unknown]
  - Nausea [Recovered/Resolved]
  - Abdominal pain upper [Recovered/Resolved]
  - Gamma-glutamyltransferase increased [Unknown]
  - Blood pressure increased [Unknown]
  - Anxiety [Unknown]
  - Hepatic enzyme increased [Not Recovered/Not Resolved]
  - Chills [Recovered/Resolved]
  - Vomiting [Unknown]
  - Alanine aminotransferase increased [Unknown]

NARRATIVE: CASE EVENT DATE: 20140403
